FAERS Safety Report 10249883 (Version 1)
Quarter: 2014Q2

REPORT INFORMATION
  Report Type: Spontaneous
  Country: US (occurrence: None)
  Receive Date: 20140619
  Receipt Date: 20140619
  Transmission Date: 20141212
  Serious: Yes (Hospitalization)
  Sender: FDA-Public Use
  Company Number: 2014CT000076

PATIENT
  Age: 67 Year
  Sex: Female

DRUGS (2)
  1. KORLYM [Suspect]
     Indication: PITUITARY-DEPENDENT CUSHING^S SYNDROME
     Route: 048
     Dates: start: 20140210
  2. PERCOCET [Suspect]

REACTIONS (3)
  - Oxygen saturation decreased [None]
  - Body temperature increased [None]
  - Drug hypersensitivity [None]
